FAERS Safety Report 6825861-8 (Version None)
Quarter: 2010Q3

REPORT INFORMATION
  Report Type: 
  Country: None (occurrence: None)
  Receive Date: 20100709
  Receipt Date: 20100628
  Transmission Date: 20110219
  Serious: Yes (Hospitalization)
  Sender: FDA-Public Use
  Company Number: US-ELI_LILLY_AND_COMPANY-US201006007491

PATIENT
  Sex: Female

DRUGS (6)
  1. BYETTA [Suspect]
     Indication: TYPE 2 DIABETES MELLITUS
     Dosage: 5 UG, 2/D
     Route: 058
  2. BYETTA [Suspect]
     Dosage: 10 UG, 2/D
     Route: 058
  3. METFORMIN HCL [Concomitant]
     Indication: TYPE 2 DIABETES MELLITUS
     Dosage: 500 MG, 2/D
  4. GLIMEPIRIDE [Concomitant]
     Indication: TYPE 2 DIABETES MELLITUS
     Dosage: 2 MG, DAILY (1/D)
  5. SYNTHROID [Concomitant]
     Dosage: 100 UG, DAILY (1/D)
  6. DIOVAN [Concomitant]
     Indication: PROPHYLAXIS
     Dosage: 40 MG, DAILY (1/D)

REACTIONS (7)
  - ARRHYTHMIA [None]
  - CARDIAC DISORDER [None]
  - DECREASED APPETITE [None]
  - DIZZINESS [None]
  - FATIGUE [None]
  - HEART RATE DECREASED [None]
  - WEIGHT DECREASED [None]
